FAERS Safety Report 4499388-5 (Version None)
Quarter: 2004Q4

REPORT INFORMATION
  Report Type: 
  Country: None (occurrence: None)
  Receive Date: 20041111
  Receipt Date: 20041101
  Transmission Date: 20050328
  Serious: Yes (Hospitalization, Disabling)
  Sender: FDA-Public Use
  Company Number: US-MERCK-0411USA00206

PATIENT
  Age: 60 Year
  Sex: Male

DRUGS (1)
  1. VIOXX [Suspect]
     Route: 048
     Dates: start: 20000101, end: 20040930

REACTIONS (14)
  - ADVERSE EVENT [None]
  - CLOSED HEAD INJURY [None]
  - CONCUSSION [None]
  - CONTUSION [None]
  - EXCORIATION [None]
  - FALL [None]
  - HEADACHE [None]
  - HYPOAESTHESIA [None]
  - JOINT SPRAIN [None]
  - LOSS OF CONSCIOUSNESS [None]
  - PAIN [None]
  - PERSONALITY CHANGE [None]
  - SUBARACHNOID HAEMORRHAGE [None]
  - TRANSIENT ISCHAEMIC ATTACK [None]
